FAERS Safety Report 19099532 (Version 1)
Quarter: 2021Q2

REPORT INFORMATION
  Report Type: Report from Study
  Country: None (occurrence: IL)
  Receive Date: 20210407
  Receipt Date: 20210407
  Transmission Date: 20210717
  Serious: Yes (Hospitalization)
  Sender: FDA-Public Use
  Company Number: IL-ABBVIE-21K-082-3846137-00

PATIENT
  Sex: Male

DRUGS (2)
  1. DUODOPA [Suspect]
     Active Substance: CARBIDOPA\LEVODOPA
     Dosage: MD 6.5 ML, CD  3.2 ML/HOUR, ED 1.7 ML THERAPY DURATION REMAINS AT 16 H
     Route: 050
  2. DUODOPA [Suspect]
     Active Substance: CARBIDOPA\LEVODOPA
     Indication: PARKINSON^S DISEASE
     Route: 050
     Dates: start: 20180512

REACTIONS (3)
  - Weight decreased [Unknown]
  - Choking [Unknown]
  - Dysphagia [Unknown]

NARRATIVE: CASE EVENT DATE: 2021
